FAERS Safety Report 10163315 (Version 3)
Quarter: 2014Q2

REPORT INFORMATION
  Report Type: Spontaneous
  Country: US (occurrence: US)
  Receive Date: 20140509
  Receipt Date: 20140613
  Transmission Date: 20141212
  Serious: Yes (Other)
  Sender: FDA-Public Use
  Company Number: CHPA2014US006221

PATIENT
  Sex: Female

DRUGS (1)
  1. KERI ADVANCED [Suspect]
     Dosage: UNK
     Route: 061

REACTIONS (2)
  - Limb injury [Recovered/Resolved]
  - Animal bite [Unknown]
